FAERS Safety Report 7935920-4 (Version None)
Quarter: 2011Q4

REPORT INFORMATION
  Report Type: 
  Country: None (occurrence: None)
  Receive Date: 20111123
  Receipt Date: 20111111
  Transmission Date: 20120403
  Serious: Yes (Hospitalization)
  Sender: FDA-Public Use
  Company Number: US-ELI_LILLY_AND_COMPANY-US201111005410

PATIENT
  Sex: Female

DRUGS (12)
  1. PRAVASTATIN [Concomitant]
  2. TRICOR [Concomitant]
  3. VERAPAMIL [Concomitant]
  4. AMBIEN [Concomitant]
  5. NEXIUM [Concomitant]
  6. LISINOPRIL [Concomitant]
  7. VITAMIN TAB [Concomitant]
  8. SYNTHROID [Concomitant]
  9. ABILIFY [Concomitant]
  10. FORTEO [Suspect]
     Indication: OSTEOPOROSIS
     Dosage: 20 UG, QD
     Route: 065
  11. XANAX [Concomitant]
  12. LEXAPRO [Concomitant]

REACTIONS (7)
  - DIZZINESS [None]
  - STRESS FRACTURE [None]
  - LOCALISED INFECTION [None]
  - HEART RATE INCREASED [None]
  - BLISTER [None]
  - BLOOD PRESSURE DECREASED [None]
  - INSOMNIA [None]
